FAERS Safety Report 5889910-6 (Version None)
Quarter: 2008Q3

REPORT INFORMATION
  Report Type: 
  Country: None (occurrence: None)
  Receive Date: 20080919
  Receipt Date: 20080911
  Transmission Date: 20090109
  Serious: Yes (Other)
  Sender: FDA-Public Use
  Company Number: PHHY2008BR07260

PATIENT
  Sex: Female

DRUGS (6)
  1. EXELON [Suspect]
     Indication: DEMENTIA ALZHEIMER'S TYPE
     Dosage: 1.5 MG DAILY
     Route: 048
     Dates: start: 20060101
  2. EXELON [Suspect]
     Dosage: 6 MG, ONCE/SINGLE
     Route: 048
     Dates: start: 20071201
  3. EXELON [Suspect]
     Route: 048
     Dates: start: 20080401
  4. EXELON [Suspect]
     Route: 062
  5. SYNTHROID [Concomitant]
     Indication: HYPOTHYROIDISM
     Dosage: 1 DF, QD
     Route: 048
  6. LOPRIL [Concomitant]
     Indication: HYPERTENSION
     Dosage: 0.5 MG, QD
     Route: 048

REACTIONS (15)
  - AGITATION [None]
  - ANOREXIA [None]
  - CRYING [None]
  - DIARRHOEA [None]
  - DYSPNOEA [None]
  - FEELING ABNORMAL [None]
  - GENERAL PHYSICAL HEALTH DETERIORATION [None]
  - LIP DISCOLOURATION [None]
  - LISTLESS [None]
  - OVERDOSE [None]
  - PALLOR [None]
  - PANIC REACTION [None]
  - RETCHING [None]
  - URINARY TRACT INFECTION [None]
  - WEIGHT INCREASED [None]
